FAERS Safety Report 7027427-6 (Version None)
Quarter: 2010Q4

REPORT INFORMATION
  Report Type: 
  Country: None (occurrence: None)
  Receive Date: 20101001
  Receipt Date: 20101001
  Transmission Date: 20110411
  Serious: No
  Sender: FDA-Public Use
  Company Number: None

PATIENT
  Age: 17 Year
  Sex: Female
  Weight: 49.8957 kg

DRUGS (1)
  1. TYELNOL COLD MULTI-SYMPTON 240ML MCNEIL CONSUMER HEALTHCARE [Suspect]
     Indication: OROPHARYNGEAL PAIN
     Dosage: 2 TABLESPOONS EVERY 4 HOURS PO
     Route: 048
     Dates: start: 20100929, end: 20100929

REACTIONS (3)
  - DIARRHOEA [None]
  - HYPERHIDROSIS [None]
  - NAUSEA [None]
